FAERS Safety Report 20471700 (Version 1)
Quarter: 2022Q1

REPORT INFORMATION
  Report Type: Spontaneous
  Country: US (occurrence: US)
  Receive Date: 20220214
  Receipt Date: 20220214
  Transmission Date: 20220424
  Serious: Yes (Death, Life-Threatening, Hospitalization, Other)
  Sender: FDA-Public Use
  Company Number: US-SA-2022SA045742

PATIENT
  Age: 67 Year
  Sex: Male

DRUGS (9)
  1. ENOXAPARIN SODIUM [Suspect]
     Active Substance: ENOXAPARIN SODIUM
     Indication: Anticoagulant therapy
     Dosage: 40 MG SUBCUTANEOUSLY DAILY
     Route: 058
  2. ENOXAPARIN SODIUM [Suspect]
     Active Substance: ENOXAPARIN SODIUM
     Dosage: 100 MG, Q12H
  3. AZITHROMYCIN [Suspect]
     Active Substance: AZITHROMYCIN
     Indication: COVID-19
     Dosage: UNK
     Route: 048
  4. DEXAMETHASONE [Concomitant]
     Active Substance: DEXAMETHASONE
     Indication: COVID-19
     Dosage: 6 MG DAILY TO BE GIVEN FOR 10 DAYS
     Route: 048
  5. OXYGEN [Concomitant]
     Active Substance: OXYGEN
     Indication: COVID-19
     Dosage: 2 L/MIN
     Route: 045
  6. OXYGEN [Concomitant]
     Active Substance: OXYGEN
     Dosage: 2-4 L/MIN
     Route: 045
  7. OXYGEN [Concomitant]
     Active Substance: OXYGEN
     Dosage: 3 L/MIN
     Route: 045
  8. OXYGEN [Concomitant]
     Active Substance: OXYGEN
     Dosage: 5 L/MIN
     Route: 045
  9. ALBUTEROL [Concomitant]
     Active Substance: ALBUTEROL
     Indication: COVID-19
     Dosage: INHALER

REACTIONS (3)
  - Retroperitoneal haematoma [Fatal]
  - Back pain [Fatal]
  - Off label use [Unknown]
